FAERS Safety Report 18180203 (Version 1)
Quarter: 2020Q3

REPORT INFORMATION
  Report Type: Spontaneous
  Country: US (occurrence: US)
  Receive Date: 20200820
  Receipt Date: 20200820
  Transmission Date: 20201103
  Serious: No
  Sender: FDA-Public Use
  Company Number: None

PATIENT
  Age: 19 Year
  Sex: Female
  Weight: 59.06 kg

DRUGS (2)
  1. ELURYNG [Concomitant]
     Active Substance: ETHINYL ESTRADIOL\ETONOGESTREL
     Dates: start: 20200701
  2. ELURYNG [Suspect]
     Active Substance: ETHINYL ESTRADIOL\ETONOGESTREL
     Indication: CONTRACEPTION
     Dosage: 3 WEEKS; 1 WEEK OFF
     Route: 067

REACTIONS (11)
  - Depressed mood [None]
  - Product substitution issue [None]
  - Crying [None]
  - Nausea [None]
  - Negative thoughts [None]
  - Dizziness [None]
  - Mood swings [None]
  - Anxiety [None]
  - Complication associated with device [None]
  - Vomiting [None]
  - Hypophagia [None]

NARRATIVE: CASE EVENT DATE: 20200805
